FAERS Safety Report 16924701 (Version 1)
Quarter: 2019Q4

REPORT INFORMATION
  Report Type: Spontaneous
  Country: US (occurrence: US)
  Receive Date: 20190823
  Receipt Date: 20190823
  Transmission Date: 20200122
  Serious: Yes (Other)
  Sender: FDA-Public Use
  Company Number: None

PATIENT
  Age: 70 Year
  Sex: Female
  Weight: 77.11 kg

DRUGS (12)
  1. CYMBALTA GENERIC 90 MGS [Concomitant]
  2. D 3 1000 IU [Concomitant]
  3. MELATONIN 5 MGS, [Concomitant]
  4. DOXEPIN 10 MGS [Concomitant]
  5. CLONAZEPAM I. AND .5 MGS, [Concomitant]
  6. ZOLPIDEM TARTRATE 10MG TABLET [Suspect]
     Active Substance: ZOLPIDEM TARTRATE
  7. L-LYSINE L000 MGS. [Concomitant]
  8. B L2 1000MGS, [Concomitant]
  9. MAGNESIUM 500 MGS, [Concomitant]
  10. ESZOPICLONE 3MG TABLET [Suspect]
     Active Substance: ESZOPICLONE
  11. FISH OIL 1200 MGS. [Concomitant]
  12. ZOLPIDEM 10MG TAB, [Suspect]
     Active Substance: ZOLPIDEM TARTRATE
     Indication: INSOMNIA
     Dosage: ?          QUANTITY:1 PILL;OTHER FREQUENCY:1 PER DAY;?
     Route: 048
     Dates: start: 20190718, end: 20190813

REACTIONS (4)
  - Insomnia [None]
  - Product substitution issue [None]
  - Drug ineffective [None]
  - Product quality issue [None]

NARRATIVE: CASE EVENT DATE: 20190719
